FAERS Safety Report 24892287 (Version 4)
Quarter: 2025Q1

REPORT INFORMATION
  Report Type: Spontaneous
  Country: ES (occurrence: ES)
  Receive Date: 20250128
  Receipt Date: 20250316
  Transmission Date: 20250409
  Serious: Yes (Other)
  Sender: AUROBINDO
  Company Number: ES-ABBVIE-6067639

PATIENT
  Age: 63 Year
  Sex: Male
  Weight: 65 kg

DRUGS (4)
  1. QUETIAPINE [Suspect]
     Active Substance: QUETIAPINE
     Indication: Anxiety
     Dosage: 25 MILLIGRAM, ONCE A DAY (1 TABLET AT NIGHT)
     Route: 048
     Dates: start: 20241212
  2. QUETIAPINE [Suspect]
     Active Substance: QUETIAPINE
     Route: 048
  3. CARBIDOPA\LEVODOPA [Suspect]
     Active Substance: CARBIDOPA\LEVODOPA
     Indication: Parkinson^s disease
     Route: 058
     Dates: start: 20240522
  4. VORTIOXETINE [Concomitant]
     Active Substance: VORTIOXETINE
     Indication: Depression
     Dosage: 10 MILLIGRAM, ONCE A DAY
     Route: 048
     Dates: start: 20250206

REACTIONS (6)
  - Hallucination [Recovered/Resolved]
  - Sleep disorder [Recovered/Resolved]
  - Pruritus [Recovered/Resolved]
  - Initial insomnia [Recovered/Resolved]
  - Restlessness [Recovered/Resolved]
  - Refusal of treatment by patient [Recovered/Resolved]

NARRATIVE: CASE EVENT DATE: 20241212
